FAERS Safety Report 4784499-7 (Version None)
Quarter: 2005Q3

REPORT INFORMATION
  Report Type: 
  Country: None (occurrence: None)
  Receive Date: 20050930
  Receipt Date: 20050928
  Transmission Date: 20060218
  Serious: Yes (Other)
  Sender: FDA-Public Use
  Company Number: US-GLAXOSMITHKLINE-A0576245A

PATIENT
  Age: 70 Year
  Sex: Female

DRUGS (5)
  1. REQUIP [Suspect]
     Indication: RESTLESS LEGS SYNDROME
     Dosage: .25MG UNKNOWN
     Route: 048
  2. NEURONTIN [Concomitant]
  3. XANAX [Concomitant]
  4. DESYREL [Concomitant]
  5. SSRI [Concomitant]

REACTIONS (1)
  - HALLUCINATION [None]
